FAERS Safety Report 4699824-5 (Version None)
Quarter: 2005Q2

REPORT INFORMATION
  Report Type: 
  Country: None (occurrence: None)
  Receive Date: 20050623
  Receipt Date: 20050613
  Transmission Date: 20051028
  Serious: Yes (Death)
  Sender: FDA-Public Use
  Company Number: 2005088627

PATIENT
  Age: 77 Year
  Sex: Male

DRUGS (7)
  1. TIKOSYN [Suspect]
     Indication: ILL-DEFINED DISORDER
     Dosage: 0.25 MG (0.125 MG, BID INTERVAL:  EVERY DAY), ORAL
     Route: 048
  2. IMDUR [Concomitant]
  3. CUMADIN (WARFARIN SODIUM) [Concomitant]
  4. LASIX [Concomitant]
  5. NORVASC [Concomitant]
  6. COREG [Concomitant]
  7. CRESTOR [Concomitant]

REACTIONS (1)
  - DEATH [None]
